FAERS Safety Report 6694769-3 (Version None)
Quarter: 2010Q2

REPORT INFORMATION
  Report Type: 
  Country: None (occurrence: None)
  Receive Date: 20100423
  Receipt Date: 20100414
  Transmission Date: 20101027
  Serious: Yes (Other)
  Sender: FDA-Public Use
  Company Number: B0649043A

PATIENT
  Age: 27 Year
  Sex: Female

DRUGS (1)
  1. CEFTAZIDIME [Suspect]
     Route: 065

REACTIONS (1)
  - ASTHMA [None]
